FAERS Safety Report 25671856 (Version 2)
Quarter: 2025Q3

REPORT INFORMATION
  Report Type: Spontaneous
  Country: EU (occurrence: EU)
  Receive Date: 20250812
  Receipt Date: 20250929
  Transmission Date: 20251020
  Serious: Yes (Hospitalization, Other)
  Sender: VERTEX
  Company Number: EU-VERTEX PHARMACEUTICALS-2025-012988

PATIENT
  Age: 14 Year
  Sex: Male

DRUGS (11)
  1. ELEXACAFTOR\IVACAFTOR\TEZACAFTOR [Suspect]
     Active Substance: ELEXACAFTOR\IVACAFTOR\TEZACAFTOR
     Indication: Cystic fibrosis
     Route: 048
  2. KALYDECO [Suspect]
     Active Substance: IVACAFTOR
     Indication: Cystic fibrosis
     Route: 048
  3. DAUNORUBICIN [Suspect]
     Active Substance: DAUNORUBICIN
     Indication: Acute lymphocytic leukaemia
     Route: 065
  4. PEGASPARGASE [Suspect]
     Active Substance: PEGASPARGASE
     Indication: Acute lymphocytic leukaemia
     Route: 065
  5. CYCLOPHOSPHAMIDE [Suspect]
     Active Substance: CYCLOPHOSPHAMIDE
     Indication: Acute lymphocytic leukaemia
     Route: 065
  6. CYCLOPHOSPHAMIDE [Suspect]
     Active Substance: CYCLOPHOSPHAMIDE
     Route: 065
  7. MERCAPTOPURINE [Suspect]
     Active Substance: MERCAPTOPURINE
     Indication: Acute lymphocytic leukaemia
     Route: 065
  8. METHOTREXATE [Suspect]
     Active Substance: METHOTREXATE
     Indication: Acute lymphocytic leukaemia
     Route: 065
  9. METHOTREXATE [Suspect]
     Active Substance: METHOTREXATE
     Route: 065
  10. DEXAMETHASONE [Suspect]
     Active Substance: DEXAMETHASONE
     Indication: Acute lymphocytic leukaemia
     Route: 048
  11. CYTARABINE [Suspect]
     Active Substance: CYTARABINE
     Indication: Acute lymphocytic leukaemia
     Route: 065

REACTIONS (13)
  - Acute lymphocytic leukaemia [Unknown]
  - Acute kidney injury [Unknown]
  - Pneumonia [Unknown]
  - Pneumonia fungal [Unknown]
  - Pneumonia viral [Unknown]
  - Neutropenia [Unknown]
  - Thrombocytopenia [Unknown]
  - Steroid diabetes [Unknown]
  - Device related thrombosis [Unknown]
  - Hepatotoxicity [Unknown]
  - Vomiting [Unknown]
  - Weight decreased [Unknown]
  - Mucosal inflammation [Unknown]
